FAERS Safety Report 15588238 (Version 2)
Quarter: 2018Q4

REPORT INFORMATION
  Report Type: Spontaneous
  Country: US (occurrence: FR)
  Receive Date: 20181105
  Receipt Date: 20181105
  Transmission Date: 20190205
  Serious: No
  Sender: FDA-Public Use
  Company Number: US-JAZZ-2018-FR-014149

PATIENT

DRUGS (3)
  1. XYREM [Suspect]
     Active Substance: SODIUM OXYBATE
     Indication: NARCOLEPSY
     Dosage: UNKNOWN DOSE
     Route: 048
  2. XYREM [Suspect]
     Active Substance: SODIUM OXYBATE
     Indication: CATAPLEXY
  3. CLOMIPRAMINE [Concomitant]
     Active Substance: CLOMIPRAMINE

REACTIONS (1)
  - Endometriosis [Unknown]

NARRATIVE: CASE EVENT DATE: 201709
